FAERS Safety Report 4755582-7 (Version None)
Quarter: 2005Q3

REPORT INFORMATION
  Report Type: 
  Country: None (occurrence: None)
  Receive Date: 20050830
  Receipt Date: 20050523
  Transmission Date: 20060218
  Serious: Yes (Other)
  Sender: FDA-Public Use
  Company Number: US-BRISTOL-MYERS SQUIBB COMPANY-12978862

PATIENT
  Age: 62 Year
  Sex: Female
  Weight: 66 kg

DRUGS (7)
  1. ABILIFY [Suspect]
     Indication: SCHIZOPHRENIA
     Dates: start: 20050520, end: 20050520
  2. ESTROPIPATE [Concomitant]
  3. ZELNORM [Concomitant]
  4. ZOLOFT [Concomitant]
  5. PROTONIX [Concomitant]
  6. LEVOTHYROXINE [Concomitant]
  7. NORVASC [Concomitant]

REACTIONS (3)
  - CONVULSION [None]
  - COORDINATION ABNORMAL [None]
  - MUSCLE RIGIDITY [None]
